FAERS Safety Report 7030811-8 (Version None)
Quarter: 2010Q4

REPORT INFORMATION
  Report Type: 
  Country: None (occurrence: None)
  Receive Date: 20101006
  Receipt Date: 20100929
  Transmission Date: 20110411
  Serious: No
  Sender: FDA-Public Use
  Company Number: US-PFIZER INC-2010124234

PATIENT
  Sex: Male
  Weight: 135 kg

DRUGS (2)
  1. DEPO-TESTOSTERONE [Suspect]
     Indication: HORMONE REPLACEMENT THERAPY
     Dosage: UNK
  2. DEPO-TESTOSTERONE [Suspect]
     Dosage: 1.5 CC PER WEEK (200 MG/CC)

REACTIONS (2)
  - BLOOD TESTOSTERONE INCREASED [None]
  - LIBIDO DECREASED [None]
